FAERS Safety Report 18694998 (Version 1)
Quarter: 2021Q1

REPORT INFORMATION
  Report Type: Spontaneous
  Country: CA (occurrence: CA)
  Receive Date: 20210104
  Receipt Date: 20210104
  Transmission Date: 20210419
  Serious: Yes (Other)
  Sender: FDA-Public Use
  Company Number: CA-PFIZER INC-2020518387

PATIENT
  Age: 83 Year
  Sex: Male

DRUGS (2)
  1. NORVASC [Suspect]
     Active Substance: AMLODIPINE BESYLATE
     Indication: HYPERTENSION
     Dosage: 5 MG
  2. NORVASC [Suspect]
     Active Substance: AMLODIPINE BESYLATE
     Dosage: 10 MG

REACTIONS (6)
  - Prostatic disorder [Unknown]
  - Blindness unilateral [Unknown]
  - Injury [Unknown]
  - Retinal injury [Unknown]
  - Blood pressure fluctuation [Unknown]
  - Muscular weakness [Recovering/Resolving]
